FAERS Safety Report 11289546 (Version 3)
Quarter: 2015Q3

REPORT INFORMATION
  Report Type: Spontaneous
  Country: US (occurrence: US)
  Receive Date: 20150721
  Receipt Date: 20150814
  Transmission Date: 20151125
  Serious: Yes (Death, Hospitalization, Other)
  Sender: FDA-Public Use
  Company Number: US-GLAXOSMITHKLINE-US2015GSK100464

PATIENT
  Age: 61 Year
  Sex: Female
  Weight: 53.97 kg

DRUGS (5)
  1. TYKERB [Suspect]
     Active Substance: LAPATINIB DITOSYLATE
     Dosage: 1000 MG, QD
     Route: 048
     Dates: start: 20150615, end: 20150720
  2. XELODA [Suspect]
     Active Substance: CAPECITABINE
     Dosage: 750 MG TWICE A DAY, CYC
     Route: 048
     Dates: start: 20150615, end: 20150720
  3. TYKERB [Suspect]
     Active Substance: LAPATINIB DITOSYLATE
     Indication: BREAST CANCER
     Dosage: 1250 MG, QD
     Route: 048
     Dates: start: 20150510
  4. XELODA [Suspect]
     Active Substance: CAPECITABINE
     Indication: BREAST CANCER METASTATIC
     Dosage: 1500 MG, BID
     Route: 048
     Dates: start: 20150510
  5. TYKERB [Suspect]
     Active Substance: LAPATINIB DITOSYLATE
     Dosage: 1250 MG, QD
     Route: 048
     Dates: start: 20150608

REACTIONS (5)
  - Death [Fatal]
  - Drug intolerance [Unknown]
  - Diarrhoea [Unknown]
  - Disease progression [Unknown]
  - Colitis [Recovering/Resolving]

NARRATIVE: CASE EVENT DATE: 20150701
